FAERS Safety Report 9697517 (Version 4)
Quarter: 2014Q1

REPORT INFORMATION
  Report Type: Spontaneous
  Country: IT (occurrence: IT)
  Receive Date: 20131120
  Receipt Date: 20140114
  Transmission Date: 20141002
  Serious: Yes (Hospitalization)
  Sender: FDA-Public Use
  Company Number: IT-JNJFOC-20131108332

PATIENT
  Age: 67 Year
  Sex: Male
  Weight: 74 kg

DRUGS (6)
  1. ZYTIGA [Suspect]
     Indication: PROSTATE CANCER METASTATIC
     Dosage: 250MGX4
     Route: 048
     Dates: start: 20130819, end: 20131108
  2. CALCIUM SANDOZ [Concomitant]
     Route: 065
  3. DELTACORTENE [Concomitant]
     Indication: PROSTATE CANCER METASTATIC
     Route: 048
     Dates: start: 20130819, end: 20131108
  4. TARGIN [Concomitant]
     Indication: PAIN
     Route: 048
     Dates: start: 20131104, end: 20131111
  5. PREGABALIN [Concomitant]
     Route: 065
  6. CARVEDILOL [Concomitant]
     Route: 065

REACTIONS (2)
  - Pleural effusion [Recovering/Resolving]
  - Asthenia [Recovering/Resolving]
